FAERS Safety Report 16393071 (Version 1)
Quarter: 2019Q2

REPORT INFORMATION
  Report Type: Spontaneous
  Country: IT (occurrence: IT)
  Receive Date: 20190605
  Receipt Date: 20190605
  Transmission Date: 20190711
  Serious: Yes (Other)
  Sender: FDA-Public Use
  Company Number: IT-ACCORD-131227

PATIENT
  Age: 57 Year
  Sex: Female

DRUGS (6)
  1. ETOPOSIDE. [Suspect]
     Active Substance: ETOPOSIDE
     Indication: LUNG NEOPLASM MALIGNANT
     Route: 042
     Dates: start: 20190319, end: 20190319
  2. ONDANSETRON [Suspect]
     Active Substance: ONDANSETRON
     Indication: LUNG NEOPLASM MALIGNANT
     Route: 042
     Dates: start: 20190319, end: 20190319
  3. METFORMIN [Concomitant]
     Active Substance: METFORMIN HYDROCHLORIDE
     Indication: HYPERGLYCAEMIA
     Route: 048
  4. CANDESARTAN. [Concomitant]
     Active Substance: CANDESARTAN
     Indication: HYPERGLYCAEMIA
     Route: 048
  5. DEXAMETHASONE. [Suspect]
     Active Substance: DEXAMETHASONE
     Indication: LUNG NEOPLASM MALIGNANT
     Route: 042
     Dates: start: 20190319, end: 20190319
  6. RANITIDINE. [Suspect]
     Active Substance: RANITIDINE
     Indication: LUNG NEOPLASM MALIGNANT
     Route: 042
     Dates: start: 20190319, end: 20190319

REACTIONS (5)
  - Hyperglycaemia [Recovered/Resolved]
  - Diarrhoea [Recovered/Resolved]
  - Tremor [Recovered/Resolved]
  - Dysentery [Recovered/Resolved]
  - Fatigue [Recovered/Resolved]

NARRATIVE: CASE EVENT DATE: 20190319
